FAERS Safety Report 7505962-1 (Version None)
Quarter: 2011Q2

REPORT INFORMATION
  Report Type: 
  Country: None (occurrence: None)
  Receive Date: 20110526
  Receipt Date: 20110516
  Transmission Date: 20111010
  Serious: Yes (Other)
  Sender: FDA-Public Use
  Company Number: PHHY2011RO40639

PATIENT
  Sex: Female

DRUGS (1)
  1. ZOMETA [Suspect]
     Dosage: 4 MG, QMO

REACTIONS (6)
  - SWELLING [None]
  - ORAL MUCOSAL ERYTHEMA [None]
  - PAIN [None]
  - OSTEONECROSIS OF JAW [None]
  - ORAL DISORDER [None]
  - EXPOSED BONE IN JAW [None]
